FAERS Safety Report 5577008-6 (Version None)
Quarter: 2007Q4

REPORT INFORMATION
  Report Type: 
  Country: None (occurrence: None)
  Receive Date: 20071130
  Receipt Date: 20070727
  Transmission Date: 20080405
  Serious: No
  Sender: FDA-Public Use
  Company Number: US200707006836

PATIENT
  Age: 55 Year
  Sex: Male

DRUGS (4)
  1. BYETTA [Suspect]
     Indication: TYPE 2 DIABETES MELLITUS
     Dosage: 5 U, 2/D, SUBCUTANEOUS
     Route: 058
     Dates: start: 20070419, end: 20070519
  2. BYETTA [Suspect]
     Indication: TYPE 2 DIABETES MELLITUS
     Dosage: 5 U, 2/D, SUBCUTANEOUS
     Route: 058
     Dates: start: 20070520
  3. METFORMIN HCL [Concomitant]
  4. GLIMEPIRIDE [Concomitant]

REACTIONS (1)
  - BLOOD GLUCOSE INCREASED [None]
